FAERS Safety Report 21253037 (Version 2)
Quarter: 2022Q4

REPORT INFORMATION
  Report Type: Spontaneous
  Country: US (occurrence: US)
  Receive Date: 20220825
  Receipt Date: 20221109
  Transmission Date: 20230113
  Serious: Yes (Other)
  Sender: FDA-Public Use
  Company Number: US-TEVA-2022-US-2066480

PATIENT
  Age: 65 Year
  Sex: Male

DRUGS (3)
  1. CARBOPLATIN [Suspect]
     Active Substance: CARBOPLATIN
     Indication: Non-small cell lung cancer metastatic
     Dosage: TWO CYCLES, THEN TWO ADDITIONAL CYCLES
     Route: 065
  2. PEMETREXED [Suspect]
     Active Substance: PEMETREXED
     Indication: Non-small cell lung cancer metastatic
     Dosage: TWO CYCLES, THEN TWO ADDITIONAL CYCLES. AFTERWARDS MAINTENANCE THERAPY CONTINUED (ONE CYCLE)
     Route: 065
  3. PEMBROLIZUMAB [Suspect]
     Active Substance: PEMBROLIZUMAB
     Indication: Non-small cell lung cancer metastatic
     Dosage: TWO CYCLES; REPEAT TWO CYCLES, AND CONTINUED AS MAINTENANCE THERAPY (SIX CYCLES)
     Route: 065

REACTIONS (2)
  - Tumour pseudoprogression [Unknown]
  - Thyroid disorder [Unknown]
